FAERS Safety Report 17439211 (Version 1)
Quarter: 2020Q1

REPORT INFORMATION
  Report Type: Report from Study
  Country: US (occurrence: US)
  Receive Date: 20200220
  Receipt Date: 20200220
  Transmission Date: 20200409
  Serious: Yes (Other)
  Sender: FDA-Public Use
  Company Number: US-ROCHE-2533288

PATIENT
  Sex: Female

DRUGS (2)
  1. HERCEPTIN [Suspect]
     Active Substance: TRASTUZUMAB
     Indication: BREAST CANCER FEMALE
     Dosage: INFUSE 450 MG INTRAVENOUSLY EVERY 21 DAY(S)
     Route: 041
  2. PERJETA [Suspect]
     Active Substance: PERTUZUMAB
     Indication: PRODUCT USED FOR UNKNOWN INDICATION
     Dosage: INFUSE 420 MG INTRAVENOUSLY EVERY 21 DAY(S)
     Route: 042

REACTIONS (4)
  - Migraine [Unknown]
  - Cellulitis [Unknown]
  - Magnetic resonance imaging brain abnormal [Unknown]
  - Dehydration [Unknown]
